FAERS Safety Report 20692192 (Version 1)
Quarter: 2022Q2

REPORT INFORMATION
  Report Type: Spontaneous
  Country: US (occurrence: US)
  Receive Date: 20220409
  Receipt Date: 20220409
  Transmission Date: 20220721
  Serious: No
  Sender: FDA-Public Use
  Company Number: US-009507513-2204USA001892

PATIENT
  Age: 68 Year
  Sex: Female

DRUGS (4)
  1. CUBICIN [Suspect]
     Active Substance: DAPTOMYCIN
     Indication: Urinary tract infection enterococcal
     Dosage: UNK
  2. CUBICIN [Suspect]
     Active Substance: DAPTOMYCIN
     Indication: Bacteraemia
  3. MEROPENEM [Concomitant]
     Active Substance: MEROPENEM
     Indication: Urinary tract infection enterococcal
  4. MEROPENEM [Concomitant]
     Active Substance: MEROPENEM
     Indication: Bacteraemia

REACTIONS (1)
  - Product use in unapproved indication [Unknown]
